FAERS Safety Report 18268178 (Version 1)
Quarter: 2020Q3

REPORT INFORMATION
  Report Type: Spontaneous
  Country: US (occurrence: US)
  Receive Date: 20200915
  Receipt Date: 20200915
  Transmission Date: 20201103
  Serious: Yes (Hospitalization)
  Sender: FDA-Public Use
  Company Number: None

PATIENT
  Age: 41 Year
  Sex: Male
  Weight: 94.5 kg

DRUGS (11)
  1. MAGESIUM HYDROXIDE SUS 30ML Q12H PRN [Concomitant]
     Dates: start: 20180828
  2. DIVALPROEX 500MG DAILY [Concomitant]
     Dates: start: 20200403
  3. OLANZAPINE ODT 20MG BEDTIME [Concomitant]
     Dates: start: 20200826
  4. METFORMIN 1000MG BID [Concomitant]
     Dates: start: 20190916
  5. ATORVASTATIN 10MG DAILY [Concomitant]
     Active Substance: ATORVASTATIN
     Dates: start: 20200722
  6. CHOLECALCIFEROL 50MCG DAILY [Concomitant]
     Dates: start: 20200527
  7. FENOFIBRATE 145MG DAILY [Concomitant]
     Dates: start: 20191016
  8. CLOZAPINE. [Suspect]
     Active Substance: CLOZAPINE
     Indication: SCHIZOPHRENIA
     Route: 048
     Dates: start: 20191224, end: 20200831
  9. SENNA 8.6MG BEDTIME [Concomitant]
     Dates: start: 20200122
  10. DIVALPROEX 750MG BEDTIME [Concomitant]
     Dates: start: 20200501
  11. DOCUSATE 100MG BID [Concomitant]
     Dates: start: 20200122

REACTIONS (3)
  - Intestinal obstruction [None]
  - Constipation [None]
  - Colitis [None]

NARRATIVE: CASE EVENT DATE: 20200831
